FAERS Safety Report 13853506 (Version 1)
Quarter: 2017Q3

REPORT INFORMATION
  Report Type: Report from Study
  Country: US (occurrence: US)
  Receive Date: 20170810
  Receipt Date: 20170810
  Transmission Date: 20171127
  Serious: Yes (Other)
  Sender: FDA-Public Use
  Company Number: US-TORRENT-00003265

PATIENT
  Age: 2 Year
  Sex: Male

DRUGS (2)
  1. DONEPEZIL HYDROCHLORIDE. [Suspect]
     Active Substance: DONEPEZIL HYDROCHLORIDE
  2. MEMANTINE. [Suspect]
     Active Substance: MEMANTINE

REACTIONS (1)
  - Depressed level of consciousness [Recovered/Resolved]
